FAERS Safety Report 8134515-X (Version None)
Quarter: 2012Q1

REPORT INFORMATION
  Report Type: 
  Country: None (occurrence: None)
  Receive Date: 20120214
  Receipt Date: 20120201
  Transmission Date: 20120608
  Serious: Yes (Other)
  Sender: FDA-Public Use
  Company Number: US-ELI_LILLY_AND_COMPANY-US201112007619

PATIENT
  Sex: Male
  Weight: 49 kg

DRUGS (2)
  1. HUMATROPE [Suspect]
     Indication: GROWTH RETARDATION
     Dosage: 0.3 MG/KG, WEEKLY (1/W)
     Dates: start: 20070301, end: 20100601
  2. HUMATROPE [Suspect]
     Dosage: 0.35 MG/KG, WEEKLY (1/W)
     Dates: end: 20100901

REACTIONS (1)
  - BLADDER TRANSITIONAL CELL CARCINOMA STAGE I [None]
